FAERS Safety Report 4609085-0 (Version None)
Quarter: 2005Q1

REPORT INFORMATION
  Report Type: 
  Country: None (occurrence: None)
  Receive Date: 20050311
  Receipt Date: 20050228
  Transmission Date: 20050727
  Serious: Yes (Hospitalization)
  Sender: FDA-Public Use
  Company Number: MK200503-0013-1

PATIENT
  Age: 58 Year
  Sex: Male

DRUGS (1)
  1. MD-GASTROVIEW [Suspect]
     Indication: COMPUTERISED TOMOGRAM
     Dosage: 10 ML, ONE TIME, PO
     Route: 048

REACTIONS (6)
  - AGITATION [None]
  - DYSPNOEA [None]
  - OEDEMA [None]
  - RESPIRATORY DISORDER [None]
  - RESPIRATORY RATE INCREASED [None]
  - SOFT TISSUE DISORDER [None]
